FAERS Safety Report 25495034 (Version 2)
Quarter: 2025Q3

REPORT INFORMATION
  Report Type: Spontaneous
  Country: CN (occurrence: CN)
  Receive Date: 20250630
  Receipt Date: 20250708
  Transmission Date: 20251021
  Serious: Yes (Hospitalization, Other)
  Sender: PFIZER
  Company Number: CN-MLMSERVICE-20250618-PI546015-00117-1

PATIENT
  Age: 61 Year
  Sex: Male

DRUGS (5)
  1. EPIRUBICIN HYDROCHLORIDE [Suspect]
     Active Substance: EPIRUBICIN HYDROCHLORIDE
     Indication: Mantle cell lymphoma
     Dosage: 60 MG, 1X/DAY, D1-2 (4 COURSES, CUMULATIVE DOSE 480 MG)
  2. CYCLOPHOSPHAMIDE [Suspect]
     Active Substance: CYCLOPHOSPHAMIDE
     Indication: Mantle cell lymphoma
     Dosage: 1200 MG, 1X/DAY, D1 (4 COURSES, CUMULATIVE DOSE 4800 MG)
  3. DEXAMETHASONE [Suspect]
     Active Substance: DEXAMETHASONE
     Indication: Mantle cell lymphoma
     Dosage: 15 MG, 1X/DAY, D1-5 (4 COURSES, 300 MG CUMULATIVE DOSE)
  4. RITUXIMAB [Suspect]
     Active Substance: RITUXIMAB
     Indication: Mantle cell lymphoma
     Dosage: 600 MG, 1X/DAY, D0 (4 COURSES, CUMULATIVE DOSE 2400 MG)
  5. VINDESINE [Suspect]
     Active Substance: VINDESINE
     Indication: Mantle cell lymphoma
     Dosage: 4 MG, 1X/DAY, D1 (4 COURSES, CUMULATIVE DOSE 16 MG)

REACTIONS (3)
  - Interstitial lung disease [Recovered/Resolved]
  - Whipple^s disease [Recovered/Resolved]
  - Pneumonia pneumococcal [Recovered/Resolved]
